FAERS Safety Report 5300884-9 (Version None)
Quarter: 2007Q2

REPORT INFORMATION
  Report Type: 
  Country: None (occurrence: None)
  Receive Date: 20070411
  Receipt Date: 20070329
  Transmission Date: 20071010
  Serious: Yes (Other)
  Sender: FDA-Public Use
  Company Number: 2007313783

PATIENT
  Age: 57 Year
  Sex: Male
  Weight: 83 kg

DRUGS (3)
  1. BENADRYL [Suspect]
     Indication: FOOD ALLERGY
     Dosage: UNSPECIFIED, ORAL
     Route: 048
  2. ANTIGLAUCOMA PREPARATIONS AND MIOTICS (ANTIGLAUCOMA PREPARATIONS AND M [Concomitant]
  3. NEXIUM [Concomitant]

REACTIONS (3)
  - FEELING ABNORMAL [None]
  - MUSCULOSKELETAL PAIN [None]
  - UNEVALUABLE EVENT [None]
